FAERS Safety Report 16481223 (Version 2)
Quarter: 2019Q4

REPORT INFORMATION
  Report Type: Report from Study
  Country: JP (occurrence: JP)
  Receive Date: 20190626
  Receipt Date: 20191113
  Transmission Date: 20200122
  Serious: Yes (Death)
  Sender: FDA-Public Use
  Company Number: JP-CELLTRION INC.-2019JP022304

PATIENT

DRUGS (7)
  1. INFLIXIMAB BS FOR I.V. INFUSION100 MG [NK] [Suspect]
     Active Substance: INFLIXIMAB
     Dosage: 200 MG, PER DAY OF ADMINISTRATION DATE
     Route: 041
     Dates: start: 20171005, end: 20171005
  2. AZULFIDINE [Concomitant]
     Active Substance: SULFASALAZINE
     Indication: RHEUMATOID ARTHRITIS
     Dosage: UNK
  3. INFLIXIMAB BS FOR I.V. INFUSION100 MG [NK] [Suspect]
     Active Substance: INFLIXIMAB
     Indication: RHEUMATOID ARTHRITIS
     Dosage: 200 MG, PER DAY OF ADMINISTRATION DATE
     Route: 041
     Dates: start: 20170511, end: 20170511
  4. RHEUMATREX [Concomitant]
     Active Substance: METHOTREXATE SODIUM
     Indication: RHEUMATOID ARTHRITIS
     Dosage: UNK
  5. INFLIXIMAB BS FOR I.V. INFUSION100 MG [NK] [Suspect]
     Active Substance: INFLIXIMAB
     Dosage: 200 MG, PER DAY OF ADMINISTRATION DATE
     Route: 041
     Dates: start: 20170706, end: 20170706
  6. INFLIXIMAB BS FOR I.V. INFUSION100 MG [NK] [Suspect]
     Active Substance: INFLIXIMAB
     Dosage: 200 MG, PER DAY OF ADMINISTRATION DATE
     Route: 041
     Dates: start: 20170608, end: 20170608
  7. INFLIXIMAB BS FOR I.V. INFUSION100 MG [NK] [Suspect]
     Active Substance: INFLIXIMAB
     Dosage: 200 MG, PER DAY OF ADMINISTRATION DATE
     Route: 041
     Dates: start: 20171109, end: 20171109

REACTIONS (3)
  - Overdose [Unknown]
  - Product use issue [Unknown]
  - Lung neoplasm malignant [Fatal]
